FAERS Safety Report 10056406 (Version 1)
Quarter: 2014Q2

REPORT INFORMATION
  Report Type: Spontaneous
  Country: US (occurrence: None)
  Receive Date: 20140401
  Receipt Date: 20140401
  Transmission Date: 20141212
  Serious: Yes (Hospitalization)
  Sender: FDA-Public Use
  Company Number: 2014-US-003506

PATIENT
  Age: 32 Year
  Sex: Male

DRUGS (2)
  1. XYREM (SODIUM OXYBATE) ORAL SOLUTION, 500 MG/ML [Suspect]
     Indication: CATAPLEXY
     Route: 048
     Dates: start: 201008, end: 2010
  2. XYREM (SODIUM OXYBATE) ORAL SOLUTION, 500 MG/ML [Suspect]
     Indication: NARCOLEPSY
     Route: 048
     Dates: start: 201008, end: 2010

REACTIONS (3)
  - Adrenal insufficiency [None]
  - Electrolyte imbalance [None]
  - Nasopharyngitis [None]
